FAERS Safety Report 9980801 (Version 2)
Quarter: 2014Q1

REPORT INFORMATION
  Report Type: Other
  Country: GB (occurrence: GB)
  Receive Date: 20140307
  Receipt Date: 20140321
  Transmission Date: 20141002
  Serious: Yes (Other)
  Sender: FDA-Public Use
  Company Number: GB-SUN PHARMACEUTICAL INDUSTRIES LTD-2014SUN00485

PATIENT
  Sex: Male

DRUGS (2)
  1. BACLOFEN [Suspect]
     Indication: PRODUCT USED FOR UNKNOWN INDICATION
     Dosage: 143.94 MCG/DAY
     Route: 037
  2. BACLOFEN [Suspect]
     Dosage: 20 % DOSE INCREASED
     Route: 037

REACTIONS (2)
  - Lung infection [Not Recovered/Not Resolved]
  - Muscle spasticity [Not Recovered/Not Resolved]
